FAERS Safety Report 9330485 (Version 3)
Quarter: 2013Q3

REPORT INFORMATION
  Report Type: Spontaneous
  Country: US (occurrence: US)
  Receive Date: 20130605
  Receipt Date: 20130708
  Transmission Date: 20140515
  Serious: Yes (Hospitalization)
  Sender: FDA-Public Use
  Company Number: US-009507513-1305USA012292

PATIENT
  Age: 56 Year
  Sex: Female
  Weight: 59.86 kg

DRUGS (3)
  1. VICTRELIS [Suspect]
     Dosage: 4 CAPSULES (800MG) THREE TIME A DAY (EVERY 7-9 HOURS)
     Route: 048
  2. REBETOL [Suspect]
     Route: 048
  3. PEGASYS [Suspect]

REACTIONS (15)
  - Blood sodium decreased [Unknown]
  - Haemoglobin decreased [Unknown]
  - White blood cell count decreased [Unknown]
  - Dysgeusia [Recovered/Resolved]
  - Dizziness [Unknown]
  - Headache [Unknown]
  - Feeding disorder [Unknown]
  - Weight decreased [Unknown]
  - Vomiting [Unknown]
  - Drug dose omission [Unknown]
  - Irritability [Unknown]
  - Asthenia [Unknown]
  - Vulvovaginal pruritus [Unknown]
  - Flatulence [Unknown]
  - Nervousness [Unknown]
